FAERS Safety Report 23342513 (Version 1)
Quarter: 2023Q4

REPORT INFORMATION
  Report Type: Report from Study
  Country: US (occurrence: None)
  Receive Date: 20231227
  Receipt Date: 20231227
  Transmission Date: 20240110
  Serious: Yes (Other)
  Sender: FDA-Public Use
  Company Number: 2023A293088

PATIENT
  Sex: Male
  Weight: 101.6 kg

DRUGS (26)
  1. FASENRA [Suspect]
     Active Substance: BENRALIZUMAB
     Indication: Asthma
     Route: 058
     Dates: start: 20220616, end: 2023
  2. MOUNJARO [Concomitant]
     Active Substance: TIRZEPATIDE
  3. ALBUTEROL SULFATE [Concomitant]
     Active Substance: ALBUTEROL SULFATE
  4. VITAMIN D2 [Concomitant]
     Active Substance: ERGOCALCIFEROL
  5. DIAZEPAM [Concomitant]
     Active Substance: DIAZEPAM
  6. OXYGEN [Concomitant]
     Active Substance: OXYGEN
  7. VITAMIN C [Concomitant]
     Active Substance: ASCORBIC ACID
  8. LINZESS [Concomitant]
     Active Substance: LINACLOTIDE
  9. BUPROPION [Concomitant]
     Active Substance: BUPROPION
  10. TORSEMIDE [Concomitant]
     Active Substance: TORSEMIDE
  11. EPINEPHRINE [Concomitant]
     Active Substance: EPINEPHRINE
  12. ADVAIR DISKUS [Concomitant]
     Active Substance: FLUTICASONE PROPIONATE\SALMETEROL XINAFOATE
  13. FARXIGA [Concomitant]
     Active Substance: DAPAGLIFLOZIN PROPANEDIOL
  14. ASPIRIN [Concomitant]
     Active Substance: ASPIRIN
  15. METOPROLOL TARTRATE [Concomitant]
     Active Substance: METOPROLOL TARTRATE
  16. SPIRIVA RESPIMAT [Concomitant]
     Active Substance: TIOTROPIUM BROMIDE
  17. TAMSULOSIN HYDROCHLORIDE [Concomitant]
     Active Substance: TAMSULOSIN HYDROCHLORIDE
  18. MONTELUKAST SODIUM [Concomitant]
     Active Substance: MONTELUKAST SODIUM
  19. DILTIAZEM [Concomitant]
     Active Substance: DILTIAZEM
  20. TORSEMIDE [Concomitant]
     Active Substance: TORSEMIDE
  21. XARELTO [Concomitant]
     Active Substance: RIVAROXABAN
  22. OMEPRAZOLE [Concomitant]
     Active Substance: OMEPRAZOLE
  23. VITAMINS [Concomitant]
     Active Substance: VITAMINS
  24. GUANFACINE HYDROCHLORIDE [Concomitant]
     Active Substance: GUANFACINE HYDROCHLORIDE
  25. ATORVASTATIN CALCIUM [Concomitant]
     Active Substance: ATORVASTATIN CALCIUM
  26. ATORVASTATIN CALCIUM DESVENLAFAXINE SUCCINATE ER [Concomitant]

REACTIONS (2)
  - Pneumonia [Unknown]
  - Illness [Unknown]
